FAERS Safety Report 11474231 (Version 1)
Quarter: 2015Q3

REPORT INFORMATION
  Report Type: Spontaneous
  Country: US (occurrence: US)
  Receive Date: 20150908
  Receipt Date: 20150908
  Transmission Date: 20151125
  Serious: No
  Sender: FDA-Public Use
  Company Number: US-JAZZ-2013-US-003925

PATIENT
  Sex: Female

DRUGS (3)
  1. XYREM [Suspect]
     Active Substance: SODIUM OXYBATE
     Indication: HYPERSOMNIA
     Dosage: DOSE ADJUSTMENTS
     Route: 048
  2. XYREM [Suspect]
     Active Substance: SODIUM OXYBATE
     Indication: NARCOLEPSY
     Dosage: 2.25 G, BID
     Route: 048
     Dates: start: 201212, end: 201212
  3. XYREM [Suspect]
     Active Substance: SODIUM OXYBATE
     Indication: FIBROMYALGIA
     Dosage: 4.5 G, BID
     Route: 048
     Dates: start: 201309

REACTIONS (6)
  - Oesophageal motility disorder [Recovering/Resolving]
  - Pseudolymphoma [Recovering/Resolving]
  - Gastrooesophageal reflux disease [Unknown]
  - Pharyngeal oedema [Unknown]
  - Dysphagia [Recovering/Resolving]
  - Swollen tongue [Unknown]

NARRATIVE: CASE EVENT DATE: 2012
